FAERS Safety Report 24140868 (Version 1)
Quarter: 2024Q3

REPORT INFORMATION
  Report Type: Spontaneous
  Country: US (occurrence: None)
  Receive Date: 20240725
  Receipt Date: 20240725
  Transmission Date: 20241016
  Serious: Yes (Other)
  Sender: Public
  Company Number: None

PATIENT
  Age: 33 Year
  Sex: Male
  Weight: 68.4 kg

DRUGS (1)
  1. CABOMETYX [Suspect]
     Active Substance: CABOZANTINIB S-MALATE
     Indication: Sarcoma metastatic
     Dosage: FREQUENCY : DAILY;?
     Route: 048
     Dates: start: 20230808

REACTIONS (4)
  - Blister [None]
  - Pain of skin [None]
  - Hyperkeratosis [None]
  - Hyperkeratosis [None]

NARRATIVE: CASE EVENT DATE: 20240725
